FAERS Safety Report 5840685-6 (Version None)
Quarter: 2008Q3

REPORT INFORMATION
  Report Type: 
  Country: None (occurrence: None)
  Receive Date: 20080811
  Receipt Date: 20080805
  Transmission Date: 20090109
  Serious: Yes (Death, Other)
  Sender: FDA-Public Use
  Company Number: PHEH2008US06925

PATIENT
  Sex: Male

DRUGS (1)
  1. AREDIA [Suspect]
     Indication: BONE DISORDER

REACTIONS (2)
  - DEATH [None]
  - MULTIPLE MYELOMA [None]
